FAERS Safety Report 22599056 (Version 1)
Quarter: 2023Q2

REPORT INFORMATION
  Report Type: Spontaneous
  Country: US (occurrence: None)
  Receive Date: 20230613
  Receipt Date: 20230613
  Transmission Date: 20230722
  Serious: No
  Sender: FDA-Public Use
  Company Number: None

PATIENT
  Sex: Male

DRUGS (17)
  1. ABIRATERONE ACETATE [Suspect]
     Active Substance: ABIRATERONE ACETATE
     Indication: Prostate cancer
     Dosage: 4T QD PO?
     Route: 048
  2. PREDNISONE [Suspect]
     Active Substance: PREDNISONE
     Indication: Prostate cancer
     Dosage: 1T BID PO
     Route: 048
  3. LIOTHRONINE [Concomitant]
  4. LEVOTHYROXINE [Concomitant]
     Active Substance: LEVOTHYROXINE
  5. POTASSIUM [Concomitant]
     Active Substance: POTASSIUM
  6. TAMSULOSIN [Concomitant]
     Active Substance: TAMSULOSIN
  7. FAMOTIDINE [Concomitant]
     Active Substance: FAMOTIDINE
  8. LOSARTAN [Concomitant]
     Active Substance: LOSARTAN
  9. COUMADIN [Concomitant]
     Active Substance: WARFARIN SODIUM
  10. EZETIMIBE [Concomitant]
     Active Substance: EZETIMIBE
  11. PRALUENT [Concomitant]
     Active Substance: ALIROCUMAB
  12. VITAMIN D3 [Concomitant]
     Active Substance: CHOLECALCIFEROL
  13. MINERALS\VITAMINS [Concomitant]
     Active Substance: MINERALS\VITAMINS
  14. NORCO [Concomitant]
     Active Substance: ACETAMINOPHEN\HYDROCODONE BITARTRATE
  15. HYDROXYZINE [Concomitant]
     Active Substance: HYDROXYZINE HYDROCHLORIDE
  16. FIRMAGON [Concomitant]
     Active Substance: DEGARELIX ACETATE
  17. ONDANSETRON [Concomitant]
     Active Substance: ONDANSETRON

REACTIONS (3)
  - Fall [None]
  - Haematoma [None]
  - General physical health deterioration [None]
